FAERS Safety Report 18127150 (Version 36)
Quarter: 2023Q2

REPORT INFORMATION
  Report Type: Spontaneous
  Country: CA (occurrence: CA)
  Receive Date: 20200810
  Receipt Date: 20230607
  Transmission Date: 20230721
  Serious: Yes (Other)
  Sender: FDA-Public Use
  Company Number: CA-CELLTRION INC.-2019CA028586

PATIENT

DRUGS (60)
  1. INFLECTRA [Suspect]
     Active Substance: INFLIXIMAB-DYYB
     Indication: Crohn^s disease
     Dosage: 500 MG (5 MG/KG) INDUCTION AT Q 0, 2, 6 THEN EVERY 8 WEEKS
     Route: 042
     Dates: start: 20200515
  2. INFLECTRA [Suspect]
     Active Substance: INFLIXIMAB-DYYB
     Dosage: 500 MG, INDUCTION AT 0, 2, 6 THEN EVERY 8 WEEKS
     Route: 042
     Dates: start: 20200515, end: 20200625
  3. INFLECTRA [Suspect]
     Active Substance: INFLIXIMAB-DYYB
     Dosage: 500 MG (5 MG/KG) AT 0, 2, 6 THEN EVERY 8 WEEKS
     Route: 042
     Dates: start: 20200528
  4. INFLECTRA [Suspect]
     Active Substance: INFLIXIMAB-DYYB
     Dosage: 500 MG (5 MG/KG) AT 0, 2, 6 THEN EVERY 8 WEEKS
     Route: 042
     Dates: start: 20200528
  5. INFLECTRA [Suspect]
     Active Substance: INFLIXIMAB-DYYB
     Dosage: 500 MG (5 MG/KG) AT 0, 2, 6 THEN EVERY 8 WEEKS
     Route: 042
     Dates: start: 20200625
  6. INFLECTRA [Suspect]
     Active Substance: INFLIXIMAB-DYYB
     Dosage: 500 MG ONCE
     Route: 042
     Dates: start: 20200811, end: 20200811
  7. INFLECTRA [Suspect]
     Active Substance: INFLIXIMAB-DYYB
     Dosage: 10 MG/KG (900 MG) EVERY 8 WEEKS
     Route: 042
     Dates: start: 20200831, end: 20201230
  8. INFLECTRA [Suspect]
     Active Substance: INFLIXIMAB-DYYB
     Dosage: 10 MG/KG (900 MG) EVERY 8 WEEKS
     Route: 042
     Dates: start: 20200909
  9. INFLECTRA [Suspect]
     Active Substance: INFLIXIMAB-DYYB
     Dosage: 10 MG/KG (900 MG) EVERY 8 WEEKS
     Route: 042
     Dates: start: 20201104
  10. INFLECTRA [Suspect]
     Active Substance: INFLIXIMAB-DYYB
     Dosage: 10 MG/KG (900 MG) EVERY 8 WEEKS
     Route: 042
     Dates: start: 20201230
  11. INFLECTRA [Suspect]
     Active Substance: INFLIXIMAB-DYYB
     Dosage: 10 MG/KG (900 MG) EVERY 8 WEEKS
     Route: 042
     Dates: start: 20210211
  12. INFLECTRA [Suspect]
     Active Substance: INFLIXIMAB-DYYB
     Dosage: 700 MG, EVERY 6  WEEKS
     Route: 042
     Dates: start: 20210325
  13. INFLECTRA [Suspect]
     Active Substance: INFLIXIMAB-DYYB
     Dosage: 10 MG/KG (900 MG) EVERY 8 WEEKS
     Route: 042
     Dates: start: 20210325
  14. INFLECTRA [Suspect]
     Active Substance: INFLIXIMAB-DYYB
     Dosage: 10 MG/KG (900 MG) EVERY 8 WEEKS
     Route: 042
     Dates: start: 20210525
  15. INFLECTRA [Suspect]
     Active Substance: INFLIXIMAB-DYYB
     Dosage: 10 MG/KG (900 MG) EVERY 8 WEEKS
     Route: 042
     Dates: start: 20210525
  16. INFLECTRA [Suspect]
     Active Substance: INFLIXIMAB-DYYB
     Dosage: 10 MG/KG (900 MG) EVERY 8 WEEKS
     Route: 042
     Dates: start: 20210706
  17. INFLECTRA [Suspect]
     Active Substance: INFLIXIMAB-DYYB
     Dosage: 10 MG/KG (900 MG) EVERY 8 WEEKS
     Route: 042
     Dates: start: 20210817
  18. INFLECTRA [Suspect]
     Active Substance: INFLIXIMAB-DYYB
     Dosage: 10 MG/KG (900 MG) EVERY 8 WEEKS
     Route: 042
     Dates: start: 20210929, end: 20211109
  19. INFLECTRA [Suspect]
     Active Substance: INFLIXIMAB-DYYB
     Dosage: 10 MG/KG (900 MG) EVERY 8 WEEKS
     Route: 042
     Dates: start: 20210929, end: 20211109
  20. INFLECTRA [Suspect]
     Active Substance: INFLIXIMAB-DYYB
     Dosage: 10 MG/KG (900 MG) EVERY 8 WEEKS
     Route: 042
     Dates: start: 20211117
  21. INFLECTRA [Suspect]
     Active Substance: INFLIXIMAB-DYYB
     Dosage: 10 MG/KG (900 MG) EVERY 8 WEEKS
     Route: 042
     Dates: start: 20211230
  22. INFLECTRA [Suspect]
     Active Substance: INFLIXIMAB-DYYB
     Dosage: 10 MG/KG (900 MG) EVERY 8 WEEKS
     Route: 042
     Dates: start: 20220210
  23. INFLECTRA [Suspect]
     Active Substance: INFLIXIMAB-DYYB
     Dosage: 700 MG EVERY 6 WEEKS
     Route: 042
     Dates: start: 20220325
  24. INFLECTRA [Suspect]
     Active Substance: INFLIXIMAB-DYYB
     Dosage: 700 MG EVERY 6 WEEKS
     Route: 042
     Dates: start: 20220602
  25. INFLECTRA [Suspect]
     Active Substance: INFLIXIMAB-DYYB
     Dosage: 700 MG EVERY 6 WEEKS
     Route: 042
     Dates: start: 20220714
  26. INFLECTRA [Suspect]
     Active Substance: INFLIXIMAB-DYYB
     Dosage: 700 MG EVERY 6 WEEKS
     Route: 042
     Dates: start: 20220823
  27. INFLECTRA [Suspect]
     Active Substance: INFLIXIMAB-DYYB
     Dosage: 700 MG, EVERY 6 WEEKS
     Route: 042
     Dates: start: 20221019
  28. INFLECTRA [Suspect]
     Active Substance: INFLIXIMAB-DYYB
     Dosage: 700 MG, EVERY 6 WEEKS
     Route: 042
     Dates: start: 20221201
  29. INFLECTRA [Suspect]
     Active Substance: INFLIXIMAB-DYYB
     Dosage: 700 MG, EVERY 6 WEEKS
     Route: 042
     Dates: start: 20230112
  30. INFLECTRA [Suspect]
     Active Substance: INFLIXIMAB-DYYB
     Dosage: 700 MG, EVERY 6 WEEKS
     Route: 042
     Dates: start: 20230309
  31. INFLECTRA [Suspect]
     Active Substance: INFLIXIMAB-DYYB
     Dosage: 700 MG, EVERY 6 WEEKS
     Route: 042
     Dates: start: 20230419
  32. INFLECTRA [Suspect]
     Active Substance: INFLIXIMAB-DYYB
     Dosage: 700 MG, 6 WEEKS
     Route: 042
     Dates: start: 20230530
  33. ACETAMINOPHEN [Concomitant]
     Active Substance: ACETAMINOPHEN
     Indication: Illness
     Dosage: 1000 MG, AS NEEDED
  34. ADVIL [Concomitant]
     Active Substance: IBUPROFEN
     Indication: Pain
     Dosage: UNK
  35. ADVIL [Concomitant]
     Active Substance: IBUPROFEN
     Dosage: 1 DF, UNKNOWN DOSE
     Route: 065
  36. ADDERALL XR [Concomitant]
     Active Substance: AMPHETAMINE ASPARTATE\AMPHETAMINE SULFATE\DEXTROAMPHETAMINE SACCHARATE\DEXTROAMPHETAMINE SULFATE
     Dosage: UNK
  37. ADDERALL XR [Concomitant]
     Active Substance: AMPHETAMINE ASPARTATE\AMPHETAMINE SULFATE\DEXTROAMPHETAMINE SACCHARATE\DEXTROAMPHETAMINE SULFATE
     Dosage: 5 MG
  38. ATIVAN [Concomitant]
     Active Substance: LORAZEPAM
     Dosage: UNK
  39. ATOMOXETINE HYDROCHLORIDE [Concomitant]
     Active Substance: ATOMOXETINE HYDROCHLORIDE
     Dosage: UNK
  40. AMLODIPINE [Concomitant]
     Active Substance: AMLODIPINE BESYLATE
     Dosage: 5 MG FREQUENCY NOT AVAILABLE
     Route: 048
  41. BENADRYL [Concomitant]
     Active Substance: DIPHENHYDRAMINE HYDROCHLORIDE
     Indication: Hypersensitivity
     Dosage: UNK
  42. BENYLIN [DIPHENHYDRAMINE HYDROCHLORIDE] [Concomitant]
     Indication: Illness
     Dosage: 1 DF, AS NEEDED PRN WHEN SICK
     Route: 065
  43. BENYLIN DM-DE-A [Concomitant]
     Indication: Illness
     Dosage: 1 DF, AS NEEDED
     Route: 065
  44. BETAMETHASONE [Concomitant]
     Active Substance: BETAMETHASONE
     Dosage: UNK, AS NEEDED (5 YEARS)
     Route: 061
  45. BUDESONIDE [Concomitant]
     Active Substance: BUDESONIDE
     Dosage: UNK
  46. CONCERTA [Concomitant]
     Active Substance: METHYLPHENIDATE HYDROCHLORIDE
     Dosage: UNK
  47. EPINEPHRINE [Concomitant]
     Active Substance: EPINEPHRINE
     Indication: Hypersensitivity
     Dosage: 0.3 MG, UNK(AUTO INJECTOR WHEN ACUTE REACTION)
  48. FLAGYL [Concomitant]
     Active Substance: METRONIDAZOLE\METRONIDAZOLE HYDROCHLORIDE
     Dosage: UNK
     Dates: start: 2019
  49. HYDROCORTISONE [Concomitant]
     Active Substance: HYDROCORTISONE
     Dosage: UNK, AS NEEDED(LIFE)
     Route: 061
  50. MODAFINIL [Concomitant]
     Active Substance: MODAFINIL
     Dosage: 100 MG, UNK
  51. BISMUTH SUBSALICYLATE\CALCIUM CARBONATE [Concomitant]
     Active Substance: BISMUTH SUBSALICYLATE\CALCIUM CARBONATE
     Dosage: UNK (1-2 TABLETS SEVERAL TIMES A WEEK- LAST 15 YEARS, INCREASING)
  52. PREDNISONE [Concomitant]
     Active Substance: PREDNISONE
     Dosage: 1-2 MG, 1X/DAY
  53. QVAR [Concomitant]
     Active Substance: BECLOMETHASONE DIPROPIONATE
     Dosage: 100 UG, UNK (2-6X/DAY LIFE)
  54. RAMIPRIL [Concomitant]
     Active Substance: RAMIPRIL
     Dosage: 5 MG FREQUENCY NOT AVAILABLE
     Route: 048
  55. AMINOSALICYLIC ACID [Concomitant]
     Active Substance: AMINOSALICYLIC ACID
     Dosage: 500 MG, 8X/DAY (SOON TO DISCONTINUE) - 1 MONTH
  56. NABIXIMOLS [Concomitant]
     Active Substance: NABIXIMOLS
     Indication: Gastrointestinal pain
     Dosage: UNK (10 ML SPRAY, -10 YEARS VARIOUS FORMS)
  57. TUMS [Concomitant]
     Active Substance: CALCIUM CARBONATE
     Dosage: UNK (1-2 TABLETS SEVERAL TIMES A WEEK FOR LAST 20 YEARS)
  58. TYLENOL EXTRA STRENGTH [Concomitant]
     Active Substance: ACETAMINOPHEN
     Indication: Pain
     Dosage: 650 MG
     Route: 048
  59. TYLENOL EXTRA STRENGTH [Concomitant]
     Active Substance: ACETAMINOPHEN
     Indication: Headache
  60. VENTOLIN [Concomitant]
     Active Substance: ALBUTEROL SULFATE
     Dosage: UNK (100MCH 2-6X/DAY)- LIFE

REACTIONS (35)
  - Colitis ulcerative [Recovering/Resolving]
  - Anal fistula [Unknown]
  - Uveitis [Unknown]
  - Therapeutic response shortened [Not Recovered/Not Resolved]
  - Drug ineffective [Unknown]
  - Drug level above therapeutic [Unknown]
  - Off label use [Unknown]
  - Off label use [Unknown]
  - Intentional product use issue [Unknown]
  - Inappropriate schedule of product administration [Unknown]
  - Arthritis [Unknown]
  - Anxiety [Unknown]
  - Feeling hot [Recovered/Resolved]
  - Food allergy [Unknown]
  - Pain in extremity [Unknown]
  - Skin disorder [Unknown]
  - Faecal calprotectin increased [Unknown]
  - Weight increased [Not Recovered/Not Resolved]
  - Fistula [Unknown]
  - Feeling abnormal [Unknown]
  - Functional gastrointestinal disorder [Unknown]
  - Blood pressure increased [Not Recovered/Not Resolved]
  - Heart rate increased [Unknown]
  - Arthralgia [Not Recovered/Not Resolved]
  - Headache [Recovered/Resolved]
  - Condition aggravated [Recovering/Resolving]
  - Ear swelling [Unknown]
  - Fatigue [Recovered/Resolved]
  - Hypertension [Not Recovered/Not Resolved]
  - Pain [Unknown]
  - Dizziness [Unknown]
  - Abscess [Unknown]
  - COVID-19 [Not Recovered/Not Resolved]
  - Fistula discharge [Not Recovered/Not Resolved]
  - Arthralgia [Unknown]

NARRATIVE: CASE EVENT DATE: 20200101
